FAERS Safety Report 19936343 (Version 5)
Quarter: 2022Q2

REPORT INFORMATION
  Report Type: Spontaneous
  Country: US (occurrence: US)
  Receive Date: 20211009
  Receipt Date: 20220502
  Transmission Date: 20220721
  Serious: No
  Sender: FDA-Public Use
  Company Number: US-LUPIN PHARMACEUTICALS INC.-2021-18862

PATIENT
  Age: 73 Year
  Sex: Male

DRUGS (2)
  1. ALBUTEROL SULFATE [Suspect]
     Active Substance: ALBUTEROL SULFATE
     Indication: Product used for unknown indication
     Dosage: UNK (2 PUFFS 1 TIME NO MORE THAN 4 TIMES)
  2. ALBUTEROL SULFATE [Suspect]
     Active Substance: ALBUTEROL SULFATE
     Dosage: UNK (2 PUFFS 1 TIME NO MORE THAN 4 TIMES)

REACTIONS (4)
  - Device delivery system issue [Unknown]
  - Device information output issue [Unknown]
  - Product preparation error [Unknown]
  - No adverse event [Unknown]
